FAERS Safety Report 5637957-7 (Version None)
Quarter: 2008Q1

REPORT INFORMATION
  Report Type: 
  Country: None (occurrence: None)
  Receive Date: 20080222
  Receipt Date: 20080222
  Transmission Date: 20080703
  Serious: No
  Sender: FDA-Public Use
  Company Number: None

PATIENT
  Sex: Male
  Weight: 63.8 kg

DRUGS (2)
  1. CISPLATIN [Suspect]
     Dosage: 134 MG
     Dates: end: 20080201
  2. TAXOTERE [Suspect]
     Dosage: 134 MG
     Dates: end: 20080201

REACTIONS (1)
  - NEUTROPHIL COUNT DECREASED [None]
